FAERS Safety Report 6573886-2 (Version None)
Quarter: 2010Q1

REPORT INFORMATION
  Report Type: 
  Country: None (occurrence: None)
  Receive Date: 20100208
  Receipt Date: 20100125
  Transmission Date: 20100710
  Serious: Yes (Death)
  Sender: FDA-Public Use
  Company Number: DE-MYLANLABS-2010S1001482

PATIENT
  Age: 58 Year
  Sex: Female
  Weight: 120 kg

DRUGS (9)
  1. CLOZAPINE [Suspect]
     Indication: DRUG USE FOR UNKNOWN INDICATION
     Dosage: DAILY DOSE: 3 DF DOSAGE FORM EVERY DAYS
  2. BIPERIDEN HYDROCHLORIDE TAB [Interacting]
     Indication: DRUG USE FOR UNKNOWN INDICATION
     Dosage: DAILY DOSE: 2 DF DOSAGE FORM EVERY DAYS
  3. SEROQUEL [Interacting]
     Indication: DRUG USE FOR UNKNOWN INDICATION
     Dosage: DAILY DOSE: 1 DF DOSAGE FORM EVERY DAYS
  4. SPASMO [Interacting]
     Indication: DRUG USE FOR UNKNOWN INDICATION
     Dosage: DAILY DOSE: 2 DF DOSAGE FORM EVERY DAYS
     Dates: start: 20091221
  5. MIRTAZAPINE [Concomitant]
     Indication: DRUG USE FOR UNKNOWN INDICATION
     Dosage: DAILY DOSE: 1 DF DOSAGE FORM EVERY DAYS
  6. L-THYROXIN [Concomitant]
     Indication: DRUG USE FOR UNKNOWN INDICATION
     Dosage: DAILY DOSE: 275 ?G MICROGRAM(S) EVERY DAYS
  7. OMEPRAZOLE [Concomitant]
     Indication: DRUG USE FOR UNKNOWN INDICATION
     Dosage: DAILY DOSE: 2 DF DOSAGE FORM EVERY DAYS
  8. LYRICA [Concomitant]
     Indication: DRUG USE FOR UNKNOWN INDICATION
     Dosage: DAILY DOSE: 2 DF DOSAGE FORM EVERY DAYS
  9. CEFURAX [Concomitant]
     Indication: DRUG USE FOR UNKNOWN INDICATION
     Dosage: DAILY DOSE: 2 DF DOSAGE FORM EVERY DAYS
     Dates: start: 20091221

REACTIONS (2)
  - DRUG INTERACTION [None]
  - SUDDEN DEATH [None]
